FAERS Safety Report 18628298 (Version 2)
Quarter: 2020Q4

REPORT INFORMATION
  Report Type: Spontaneous
  Country: US (occurrence: US)
  Receive Date: 20201217
  Receipt Date: 20201218
  Transmission Date: 20210114
  Serious: No
  Sender: FDA-Public Use
  Company Number: US-ESPERIONTHERAPEUTICS-2020USA00035

PATIENT
  Age: 53 Year
  Sex: Female

DRUGS (2)
  1. NEXLETOL [Suspect]
     Active Substance: BEMPEDOIC ACID
     Indication: ARTERIOSCLEROSIS
     Dosage: 180 MILLIGRAM, QD
     Route: 048
     Dates: start: 20200717
  2. NEXLETOL [Suspect]
     Active Substance: BEMPEDOIC ACID
     Dosage: UNK
     Route: 065

REACTIONS (2)
  - Haematoma [Recovering/Resolving]
  - Rash [Recovering/Resolving]

NARRATIVE: CASE EVENT DATE: 2020
